FAERS Safety Report 6230408-3 (Version None)
Quarter: 2009Q2

REPORT INFORMATION
  Report Type: 
  Country: None (occurrence: None)
  Receive Date: 20090615
  Receipt Date: 20090325
  Transmission Date: 20091009
  Serious: No
  Sender: FDA-Public Use
  Company Number: US-ABBOTT-09P-163-0564745-00

PATIENT
  Age: 60 Year
  Sex: Male
  Weight: 86.26 kg

DRUGS (2)
  1. TRILIPIX [Suspect]
     Indication: BLOOD TRIGLYCERIDES INCREASED
     Dates: start: 20090113
  2. TRILIPIX [Suspect]
     Dates: end: 20090101

REACTIONS (1)
  - CHEST PAIN [None]
